FAERS Safety Report 6932412-6 (Version None)
Quarter: 2010Q3

REPORT INFORMATION
  Report Type: 
  Country: None (occurrence: None)
  Receive Date: 20100819
  Receipt Date: 20080422
  Transmission Date: 20110219
  Serious: Yes (Hospitalization)
  Sender: FDA-Public Use
  Company Number: CN-BAYER-201036279GPV

PATIENT
  Age: 39 Year
  Sex: Male

DRUGS (2)
  1. NEXAVAR [Suspect]
     Indication: HEPATIC NEOPLASM MALIGNANT
     Dosage: TOTAL DAILY DOSE: 400 MG
     Route: 048
     Dates: start: 20080120
  2. NEXAVAR [Suspect]
     Dosage: TOTAL DAILY DOSE: 800 MG
     Route: 048
     Dates: start: 20080110, end: 20080120

REACTIONS (7)
  - ABDOMINAL PAIN [None]
  - ADVERSE DRUG REACTION [None]
  - DECREASED APPETITE [None]
  - GLOSSODYNIA [None]
  - PAIN OF SKIN [None]
  - RASH [None]
  - SKIN EXFOLIATION [None]
